FAERS Safety Report 9173232 (Version 1)
Quarter: 2013Q1

REPORT INFORMATION
  Report Type: Spontaneous
  Country: US (occurrence: None)
  Receive Date: 20130319
  Receipt Date: 20130319
  Transmission Date: 20140127
  Serious: Yes (Hospitalization)
  Sender: FDA-Public Use
  Company Number: None

PATIENT
  Age: 34 Year
  Sex: Female
  Weight: 52.2 kg

DRUGS (17)
  1. SOTATERCEPT [Suspect]
     Indication: CONGENITAL APLASTIC ANAEMIA
     Dates: start: 20121204, end: 20130206
  2. RED BLOOD CELLS [Concomitant]
  3. DEFEROXAMINE [Concomitant]
  4. DEFERASIROX [Concomitant]
  5. DIGOXIN [Concomitant]
  6. PLAVIX [Concomitant]
  7. TRICOR [Concomitant]
  8. CYMBALTA [Concomitant]
  9. TRAZADONE [Concomitant]
  10. NECON [Concomitant]
  11. BUTALBITAL-TYLENOL [Concomitant]
  12. MORPHINE [Concomitant]
  13. CALCIUM [Concomitant]
  14. VITAMIN D [Concomitant]
  15. XANAX [Concomitant]
  16. LEVOTHYROXINE [Concomitant]
  17. LYOTHYRINE [Concomitant]

REACTIONS (4)
  - Malaise [None]
  - Fatigue [None]
  - Pain [None]
  - Dyspnoea exertional [None]
